FAERS Safety Report 6370008-8 (Version None)
Quarter: 2009Q3

REPORT INFORMATION
  Report Type: 
  Country: None (occurrence: None)
  Receive Date: 20090923
  Receipt Date: 20070410
  Transmission Date: 20100115
  Serious: Yes (Other)
  Sender: FDA-Public Use
  Company Number: US-ASTRAZENECA-2005UW13301

PATIENT
  Age: 475 Month
  Sex: Male
  Weight: 126.6 kg

DRUGS (27)
  1. SEROQUEL [Suspect]
     Indication: BIPOLAR DISORDER
     Route: 048
     Dates: start: 19981208, end: 20000708
  2. SEROQUEL [Suspect]
     Indication: PSYCHOTIC DISORDER
     Route: 048
     Dates: start: 19981208, end: 20000708
  3. SEROQUEL [Suspect]
     Dosage: 25 MG - 200 MG (FLUCTUATING)
     Route: 048
     Dates: start: 19981208, end: 20000816
  4. SEROQUEL [Suspect]
     Dosage: 25 MG - 200 MG (FLUCTUATING)
     Route: 048
     Dates: start: 19981208, end: 20000816
  5. ABILIFY [Concomitant]
     Dates: start: 20040101
  6. ABILIFY [Concomitant]
     Route: 048
     Dates: start: 20030807
  7. GEODON [Concomitant]
     Dates: start: 20020101
  8. GEODON [Concomitant]
     Route: 048
     Dates: start: 20020716
  9. HALDOL [Concomitant]
     Indication: PSYCHOTIC DISORDER
     Dates: start: 20000101
  10. HALDOL [Concomitant]
     Route: 048
     Dates: start: 20010426
  11. ZYPREXA [Concomitant]
     Dates: start: 19970101, end: 19980101
  12. ZYPREXA [Concomitant]
     Dates: end: 19980128
  13. AMPHETAMINE SULFATE [Concomitant]
  14. OPIUM [Concomitant]
  15. CANNABIS [Concomitant]
  16. CLONAZEPAM [Concomitant]
     Route: 048
     Dates: start: 20010507
  17. DEPAKOTE [Concomitant]
     Indication: AFFECTIVE DISORDER
     Route: 048
     Dates: start: 20010426
  18. BENZTROPINE MESYLATE [Concomitant]
     Route: 048
     Dates: start: 20010508
  19. METFORMIN HCL [Concomitant]
     Route: 048
     Dates: start: 20020925
  20. IBUPROFEN [Concomitant]
     Route: 048
     Dates: start: 20020925
  21. GLYBURIDE [Concomitant]
     Route: 048
     Dates: start: 20021029
  22. FLUPHENAZINE [Concomitant]
     Route: 048
     Dates: start: 20021122
  23. ACTOS [Concomitant]
     Route: 048
     Dates: start: 20030627
  24. ENALAPRIL MALEATE [Concomitant]
     Route: 048
     Dates: start: 20040520
  25. LANTUS [Concomitant]
     Dosage: 55 UNITS- MORNING AND 50 UNITS- EVENING
     Dates: start: 20030924
  26. COGENTIN [Concomitant]
     Route: 048
  27. NOVOLIN INSULIN [Concomitant]
     Dosage: TWO TIMES A DAY
     Dates: start: 20031230

REACTIONS (3)
  - DIABETES MELLITUS [None]
  - DIABETES MELLITUS INADEQUATE CONTROL [None]
  - TARDIVE DYSKINESIA [None]
